FAERS Safety Report 6989385-X (Version None)
Quarter: 2010Q3

REPORT INFORMATION
  Report Type: 
  Country: None (occurrence: None)
  Receive Date: 20100916
  Receipt Date: 20091113
  Transmission Date: 20110219
  Serious: Yes (Other)
  Sender: FDA-Public Use
  Company Number: FR-PFIZER INC-2009297805

PATIENT
  Age: 47 Year
  Sex: Female

DRUGS (3)
  1. LYRICA [Suspect]
     Indication: BACK PAIN
     Dosage: UNK
     Dates: start: 20081001
  2. AMITRIPTYLINE HCL [Concomitant]
     Dosage: UNK
  3. PARACETAMOL [Concomitant]
     Indication: BACK PAIN
     Dosage: UNK

REACTIONS (2)
  - ASTHENIA [None]
  - CARDIOMYOPATHY [None]
